FAERS Safety Report 7712620-7 (Version None)
Quarter: 2011Q3

REPORT INFORMATION
  Report Type: 
  Country: None (occurrence: None)
  Receive Date: 20110826
  Receipt Date: 20110823
  Transmission Date: 20111222
  Serious: Yes (Death, Hospitalization)
  Sender: FDA-Public Use
  Company Number: FR-JNJFOC-20110810464

PATIENT
  Age: 80 Year
  Sex: Female

DRUGS (14)
  1. LEVOFLOXACIN [Suspect]
     Indication: LUNG INFECTION
     Route: 065
     Dates: start: 20110415, end: 20110415
  2. ATORVASTATIN CALCIUM [Concomitant]
     Route: 065
     Dates: start: 20110330
  3. MULTAQ [Suspect]
     Indication: PRODUCT USED FOR UNKNOWN INDICATION
     Route: 048
     Dates: start: 20110317, end: 20110426
  4. AUGMENTIN '125' [Suspect]
     Indication: BRONCHITIS
     Route: 065
     Dates: start: 20110328, end: 20110409
  5. NEO-MERCAZOLE TAB [Suspect]
     Route: 065
     Dates: start: 20110329, end: 20110426
  6. ERYTHROMYCIN [Suspect]
     Indication: LUNG INFECTION
     Route: 065
     Dates: start: 20110420, end: 20110426
  7. LEVOFLOXACIN [Suspect]
     Route: 065
     Dates: start: 20110416, end: 20110426
  8. AUGMENTIN '125' [Suspect]
     Route: 065
     Dates: start: 20110413, end: 20110421
  9. NEO-MERCAZOLE TAB [Suspect]
     Indication: HYPERTHYROIDISM
     Route: 065
     Dates: start: 20110316, end: 20110329
  10. AMLODIPINE BESYLATE [Concomitant]
     Route: 065
     Dates: start: 20110330
  11. PULMICORT [Concomitant]
     Route: 065
     Dates: start: 20110414
  12. FUROSEMIDE [Concomitant]
     Route: 065
     Dates: start: 20110330
  13. PREVISCAN (FLUINDIONE) [Concomitant]
     Route: 065
     Dates: start: 20110329
  14. FLUTICASONE PROPIONATE [Concomitant]
     Route: 065
     Dates: start: 20110414

REACTIONS (2)
  - DEATH [None]
  - RENAL FAILURE ACUTE [None]
